FAERS Safety Report 4573064-2 (Version None)
Quarter: 2005Q1

REPORT INFORMATION
  Report Type: 
  Country: None (occurrence: None)
  Receive Date: 20050204
  Receipt Date: 20050120
  Transmission Date: 20050727
  Serious: Yes (Death)
  Sender: FDA-Public Use
  Company Number: 212037

PATIENT
  Age: 65 Year
  Sex: Male

DRUGS (9)
  1. AVASTIN [Suspect]
     Indication: COLORECTAL CANCER METASTATIC
     Dosage: 312.5 MG, Q2W, INTRAVENOUS
     Route: 042
     Dates: start: 20050118, end: 20050118
  2. FOLINIC ACID (LEVCOVORIN CALCIUM) [Suspect]
     Indication: COLORECTAL CANCER METASTATIC
     Dosage: 340 MG, Q2W, INTRAVENOUS
     Route: 042
     Dates: start: 20050117, end: 20050117
  3. IRINOTECAN (IRINOTECAN HYDROCHLORIDE) [Suspect]
     Indication: COLORECTAL CANCER METASTATIC
     Dosage: 310 MG, Q2W, INTRAVENOUS
     Route: 042
     Dates: start: 20050117, end: 20050117
  4. 5-FLUOROURACIL (FLUORORACIL) [Suspect]
     Indication: COLORECTAL CANCER METASTATIC
     Dosage: SEE IMAGE
     Route: 040
     Dates: start: 20050117, end: 20050117
  5. DEXAMETHASONE [Concomitant]
  6. MOTILIUM (DOMPERDONE) [Concomitant]
  7. WARFARIN SODIUM [Concomitant]
  8. ZOFRAN [Concomitant]
  9. ATROPINE [Concomitant]

REACTIONS (6)
  - CARDIAC ARREST [None]
  - CHEST DISCOMFORT [None]
  - DRUG INEFFECTIVE [None]
  - HAEMOGLOBIN DECREASED [None]
  - VENTRICULAR FIBRILLATION [None]
  - WHITE BLOOD CELL COUNT INCREASED [None]
